FAERS Safety Report 16169470 (Version 2)
Quarter: 2019Q2

REPORT INFORMATION
  Report Type: Spontaneous
  Country: US (occurrence: US)
  Receive Date: 20190408
  Receipt Date: 20190521
  Transmission Date: 20190711
  Serious: No
  Sender: FDA-Public Use
  Company Number: US-HTU-2019US018512

PATIENT
  Sex: Male

DRUGS (1)
  1. VALCHLOR [Suspect]
     Active Substance: MECHLORETHAMINE
     Indication: CUTANEOUS T-CELL LYMPHOMA
     Dosage: UNK, DAILY
     Route: 061
     Dates: start: 20190109

REACTIONS (7)
  - Drug intolerance [Unknown]
  - Hypersensitivity [Unknown]
  - Condition aggravated [Unknown]
  - Skin burning sensation [Unknown]
  - Skin ulcer [Unknown]
  - Pruritus [Unknown]
  - Pain of skin [Unknown]
